FAERS Safety Report 21767211 (Version 1)
Quarter: 2022Q4

REPORT INFORMATION
  Report Type: Report from Study
  Country: US (occurrence: US)
  Receive Date: 20221222
  Receipt Date: 20221222
  Transmission Date: 20230113
  Serious: No
  Sender: FDA-Public Use
  Company Number: US-ABBVIE-4246724

PATIENT
  Sex: Male

DRUGS (1)
  1. VENCLEXTA [Suspect]
     Active Substance: VENETOCLAX
     Indication: Acute myeloid leukaemia
     Dosage: THE ONSET DATE FOR EYE DISORDER WAS 2022., DRUG LAST ADMIN DATE WAS 2022
     Route: 048
     Dates: start: 20220427

REACTIONS (1)
  - Eye disorder [Unknown]
